FAERS Safety Report 20836932 (Version 2)
Quarter: 2022Q2

REPORT INFORMATION
  Report Type: Spontaneous
  Country: US (occurrence: US)
  Receive Date: 20220517
  Receipt Date: 20220520
  Transmission Date: 20220721
  Serious: No
  Sender: FDA-Public Use
  Company Number: US-ELI_LILLY_AND_COMPANY-US202205006174

PATIENT
  Age: 27 Year
  Sex: Male

DRUGS (1)
  1. PROZAC [Suspect]
     Active Substance: FLUOXETINE HYDROCHLORIDE
     Indication: Product used for unknown indication
     Dosage: 60 MG, UNKNOWN
     Route: 065

REACTIONS (5)
  - Enlarged cerebral perivascular spaces [Unknown]
  - Paraesthesia [Unknown]
  - Feeling abnormal [Unknown]
  - Headache [Unknown]
  - Head discomfort [Unknown]
